FAERS Safety Report 8812056 (Version 1)
Quarter: 2012Q4

REPORT INFORMATION
  Report Type: 
  Country: US (occurrence: US)
  Receive Date: 20120927
  Receipt Date: 20120927
  Transmission Date: 20130627
  Serious: Yes (Other)
  Sender: FDA-Public Use
  Company Number: CHPA2012US020227

PATIENT
  Age: 62 Year
  Sex: Male

DRUGS (3)
  1. MAALOX [Suspect]
     Indication: ULCER
     Dosage: Unk, Unk
     Route: 048
     Dates: start: 2007
  2. ACIPHEX [Concomitant]
     Indication: ABDOMINAL PAIN UPPER
     Dosage: 20 mg, Unk
  3. ACIPHEX [Concomitant]
     Indication: ULCER

REACTIONS (2)
  - Diabetes mellitus [Not Recovered/Not Resolved]
  - Off label use [Unknown]
